FAERS Safety Report 6031633-7 (Version None)
Quarter: 2008Q4

REPORT INFORMATION
  Report Type: 
  Country: None (occurrence: None)
  Receive Date: 20081229
  Receipt Date: 20080320
  Transmission Date: 20090506
  Serious: Yes (Hospitalization)
  Sender: FDA-Public Use
  Company Number: WAES 0803USA03487

PATIENT
  Age: 81 Year
  Sex: Female

DRUGS (2)
  1. ZETIA [Suspect]
     Indication: CORONARY ARTERY DISEASE
     Dosage: UNK UNK PO
     Route: 048
  2. PRAVACHOL [Concomitant]

REACTIONS (1)
  - PANCREATITIS [None]
